FAERS Safety Report 7512573-0 (Version None)
Quarter: 2011Q2

REPORT INFORMATION
  Report Type: 
  Country: None (occurrence: None)
  Receive Date: 20110520
  Receipt Date: 20110505
  Transmission Date: 20111010
  Serious: Yes (Other)
  Sender: FDA-Public Use
  Company Number: DSA_45575_2011

PATIENT
  Sex: Female

DRUGS (5)
  1. WELLBUTRIN [Suspect]
     Indication: SMOKING CESSATION THERAPY
     Dosage: (DF ORAL)
     Route: 048
  2. ALPRAZOLAM [Concomitant]
  3. TRAMADOL HCL [Concomitant]
  4. CHANTIX [Suspect]
     Indication: SMOKING CESSATION THERAPY
     Dosage: (DF ORAL) , (DF ORAL)
     Route: 048
     Dates: start: 20060101
  5. CHANTIX [Suspect]
     Indication: SMOKING CESSATION THERAPY
     Dosage: (DF ORAL) , (DF ORAL)
     Route: 048
     Dates: start: 20110401

REACTIONS (13)
  - BLOOD URINE PRESENT [None]
  - WRONG TECHNIQUE IN DRUG USAGE PROCESS [None]
  - DRUG INEFFECTIVE [None]
  - ANXIETY [None]
  - STRESS [None]
  - CRYING [None]
  - FRUSTRATION [None]
  - CYSTOCELE [None]
  - NEPHROLITHIASIS [None]
  - FATIGUE [None]
  - DYSGEUSIA [None]
  - WEIGHT INCREASED [None]
  - NAUSEA [None]
